FAERS Safety Report 9881900 (Version 1)
Quarter: 2014Q1

REPORT INFORMATION
  Report Type: Spontaneous
  Country: US (occurrence: US)
  Receive Date: 20140207
  Receipt Date: 20140207
  Transmission Date: 20141002
  Serious: Yes (Hospitalization)
  Sender: FDA-Public Use
  Company Number: US-SA-2014SA012313

PATIENT
  Age: 68 Year
  Sex: Female

DRUGS (2)
  1. DOCETAXEL [Suspect]
     Indication: BREAST CANCER
     Route: 065
  2. TRASTUZUMAB [Suspect]
     Indication: BREAST CANCER
     Dosage: FORM: INFUSION
     Route: 042

REACTIONS (2)
  - Metastases to central nervous system [Not Recovered/Not Resolved]
  - Headache [Not Recovered/Not Resolved]
